FAERS Safety Report 9097525 (Version 2)
Quarter: 2013Q1

REPORT INFORMATION
  Report Type: Spontaneous
  Country: US (occurrence: US)
  Receive Date: 20130212
  Receipt Date: 20130220
  Transmission Date: 20140127
  Serious: Yes (Other)
  Sender: FDA-Public Use
  Company Number: US-PFIZER INC-2013056907

PATIENT
  Age: 55 Year
  Sex: Male

DRUGS (7)
  1. ALTACE [Suspect]
     Dosage: 10 MG, UNK
  2. STELARA [Suspect]
     Indication: PSORIASIS
     Dosage: 90 MG, UNK
     Route: 058
     Dates: start: 20121108
  3. AMITRIPTYLINE [Concomitant]
     Dosage: 100 MG, UNK
  4. CRESTOR [Concomitant]
     Dosage: 10 MG, UNK
  5. NEXIUM [Concomitant]
     Dosage: 40 MG, UNK
  6. SINGULAIR [Concomitant]
     Dosage: 10 MG, UNK
  7. ZETIA [Concomitant]
     Dosage: 10 MG, UNK

REACTIONS (1)
  - Angioedema [Recovered/Resolved]
